FAERS Safety Report 7024711-7 (Version None)
Quarter: 2010Q4

REPORT INFORMATION
  Report Type: 
  Country: None (occurrence: None)
  Receive Date: 20101001
  Receipt Date: 20100924
  Transmission Date: 20110411
  Serious: Yes (Hospitalization)
  Sender: FDA-Public Use
  Company Number: US-JNJFOC-20100800412

PATIENT
  Sex: Female
  Weight: 70.31 kg

DRUGS (3)
  1. ULTRAM [Suspect]
     Indication: ARTHRALGIA
     Dosage: STOPPED IN OCT-2009
     Route: 048
  2. SYNTHROID [Concomitant]
     Indication: THYROID DISORDER
     Route: 048
  3. AMITRIPTYLINE [Concomitant]
     Indication: MIGRAINE
     Route: 048

REACTIONS (2)
  - COMA [None]
  - HYPOXIA [None]
